FAERS Safety Report 18357508 (Version 1)
Quarter: 2020Q4

REPORT INFORMATION
  Report Type: Other
  Country: US (occurrence: US)
  Receive Date: 20201008
  Receipt Date: 20201008
  Transmission Date: 20210114
  Serious: Yes (Hospitalization, Other)
  Sender: FDA-Public Use
  Company Number: US-ROCHE-2687097

PATIENT

DRUGS (1)
  1. OCRELIZUMAB. [Suspect]
     Active Substance: OCRELIZUMAB
     Indication: MULTIPLE SCLEROSIS
     Route: 042

REACTIONS (10)
  - Urinary tract infection [Unknown]
  - Respiratory tract infection [Unknown]
  - Appendicitis [Unknown]
  - Abscess [Unknown]
  - Infusion related reaction [Unknown]
  - Uterine leiomyoma [Unknown]
  - Pneumonia [Unknown]
  - Breast cancer [Unknown]
  - Sepsis [Unknown]
  - Bronchospasm [Unknown]
